FAERS Safety Report 4430598-9 (Version None)
Quarter: 2004Q3

REPORT INFORMATION
  Report Type: 
  Country: None (occurrence: None)
  Receive Date: 20040818
  Receipt Date: 20040802
  Transmission Date: 20050211
  Serious: Yes (Other)
  Sender: FDA-Public Use
  Company Number: DE_040814060

PATIENT
  Sex: Male
  Weight: 63 kg

DRUGS (4)
  1. SOMATROPIN [Suspect]
     Indication: HYPOPITUITARISM
     Dosage: 1.5 IU DAY
  2. THYROXINE (LEVOTHYROXINE SODIUM) [Concomitant]
  3. TESTOSTERONE ENANTHATE ^THERAMEX^ (TESTOSTERONE ENANTHATE) [Concomitant]
  4. CORTISONE ACETATE [Concomitant]

REACTIONS (9)
  - ACROMEGALY [None]
  - BRADYCARDIA [None]
  - DEPRESSION [None]
  - DIZZINESS [None]
  - DRUG WITHDRAWAL SYNDROME [None]
  - FATIGUE [None]
  - HEADACHE [None]
  - HYPOTENSION [None]
  - SLEEP APNOEA SYNDROME [None]
